FAERS Safety Report 18346348 (Version 2)
Quarter: 2020Q4

REPORT INFORMATION
  Report Type: Spontaneous
  Country: IT (occurrence: IT)
  Receive Date: 20201005
  Receipt Date: 20201013
  Transmission Date: 20210114
  Serious: Yes (Hospitalization)
  Sender: FDA-Public Use
  Company Number: IT-OTSUKA-2020_023878

PATIENT
  Age: 15 Year
  Sex: Female

DRUGS (3)
  1. ABILIFY [Suspect]
     Active Substance: ARIPIPRAZOLE
     Indication: AFFECTIVE DISORDER
     Dosage: 25 DF, UNK
     Route: 048
     Dates: start: 20181204, end: 20181204
  2. FLUOXEREN [Suspect]
     Active Substance: FLUOXETINE HYDROCHLORIDE
     Indication: AFFECTIVE DISORDER
     Dosage: 8 DF, UNK
     Route: 048
     Dates: start: 20181204, end: 20181204
  3. ABILIFY [Suspect]
     Active Substance: ARIPIPRAZOLE
     Dosage: UNK (REDUCED DOSE)
     Route: 065

REACTIONS (5)
  - Intentional overdose [Unknown]
  - Product use in unapproved indication [Unknown]
  - Drug abuse [Unknown]
  - Suicidal ideation [Recovering/Resolving]
  - Blood fibrinogen increased [Recovering/Resolving]

NARRATIVE: CASE EVENT DATE: 20181204
